FAERS Safety Report 9982501 (Version 1)
Quarter: 2014Q1

REPORT INFORMATION
  Report Type: Report from Study
  Country: US (occurrence: US)
  Receive Date: 20140307
  Receipt Date: 20140307
  Transmission Date: 20141002
  Serious: No
  Sender: FDA-Public Use
  Company Number: US-ABBVIE-13P-163-1180331-00

PATIENT
  Age: 71 Year
  Sex: Male

DRUGS (10)
  1. HUMIRA [Suspect]
     Indication: CROHN^S DISEASE
     Dates: start: 20131017
  2. ATENOLOL [Concomitant]
     Indication: HYPERTENSION
     Dosage: 1 PILL
  3. LIPITOR [Concomitant]
     Indication: BLOOD CHOLESTEROL INCREASED
     Dosage: 1 PILL
  4. FLOMAX [Concomitant]
     Indication: PROSTATE CANCER
  5. MULTIVITAMIN [Concomitant]
     Indication: ROUTINE HEALTH MAINTENANCE
  6. OXYBUTYNIN CHLORIDE [Concomitant]
     Indication: PRODUCT USED FOR UNKNOWN INDICATION
  7. VIT C [Concomitant]
     Indication: ROUTINE HEALTH MAINTENANCE
  8. GABAPENTIN [Concomitant]
     Indication: HYPOAESTHESIA
  9. CENTRUM SILVER [Concomitant]
     Indication: ROUTINE HEALTH MAINTENANCE
  10. OSTEO-BIFLEX [Concomitant]
     Indication: ARTHROPATHY

REACTIONS (1)
  - Headache [Recovered/Resolved]
